FAERS Safety Report 8259421 (Version 2)
Quarter: 2012Q4

REPORT INFORMATION
  Report Type: Spontaneous
  Country: GB (occurrence: None)
  Receive Date: 20111116
  Receipt Date: 20120822
  Transmission Date: 20130627
  Serious: Yes (Hospitalization)
  Sender: FDA-Public Use
  Company Number: 2011AP002577

PATIENT
  Age: 47 Year
  Sex: Female

DRUGS (5)
  1. LEFLUNOMIDE [Suspect]
     Indication: RHEUMATOID ARTHRITIS
     Dosage: 20 MG; PO;QD
     Route: 048
     Dates: start: 200706, end: 201107
  2. RITUXIMAB [Suspect]
     Indication: RHEUMATOID ARTHRITIS
     Dosage: 1 G;IV
     Route: 042
     Dates: start: 201010
  3. IRON (IRON) [Concomitant]
  4. LEVOTHYROXINE SODIUM [Concomitant]
  5. VIT B12 (CYANOCOBALAMIN) [Concomitant]

REACTIONS (2)
  - CELLULITIS [None]
  - NEUTROPENIA [None]
